FAERS Safety Report 7741245-2 (Version None)
Quarter: 2011Q3

REPORT INFORMATION
  Report Type: 
  Country: None (occurrence: None)
  Receive Date: 20110909
  Receipt Date: 20110830
  Transmission Date: 20111222
  Serious: Yes (Other)
  Sender: FDA-Public Use
  Company Number: JP-PFIZER INC-2011210830

PATIENT
  Age: 54 Year
  Sex: Male

DRUGS (1)
  1. CELECOXIB [Suspect]
     Dosage: 100 MG DAILY
     Route: 048

REACTIONS (2)
  - RASH [None]
  - BLOOD PRESSURE DECREASED [None]
